FAERS Safety Report 7553065-2 (Version None)
Quarter: 2011Q2

REPORT INFORMATION
  Report Type: 
  Country: None (occurrence: None)
  Receive Date: 20110616
  Receipt Date: 20110602
  Transmission Date: 20111010
  Serious: Yes (Hospitalization)
  Sender: FDA-Public Use
  Company Number: GB-MERCK-0909GBR00035

PATIENT
  Sex: Male

DRUGS (3)
  1. CARBIDOPA AND LEVODOPA [Concomitant]
     Route: 048
  2. SINEMET [Suspect]
     Route: 048
  3. SINEMET [Suspect]
     Route: 048

REACTIONS (2)
  - ADVERSE EVENT [None]
  - THERAPY REGIMEN CHANGED [None]
